FAERS Safety Report 24707587 (Version 1)
Quarter: 2024Q4

REPORT INFORMATION
  Report Type: Spontaneous
  Country: CN (occurrence: CN)
  Receive Date: 20241206
  Receipt Date: 20241206
  Transmission Date: 20250115
  Serious: Yes (Hospitalization, Other)
  Sender: GENEYORK PHARMACEUTICALS GROUP LLC
  Company Number: CN-GENEYORK-2024PPLIT00066

PATIENT
  Age: 52 Year
  Sex: Female

DRUGS (9)
  1. PREDNISONE [Suspect]
     Active Substance: PREDNISONE
     Indication: Langerhans^ cell histiocytosis
     Dosage: ON DAYS 1-5, 4 CYCLES
     Route: 065
  2. VINDESINE [Suspect]
     Active Substance: VINDESINE
     Indication: Langerhans^ cell histiocytosis
     Dosage: ON DAYS 1-5, 4 CYCLES
     Route: 065
  3. INSULIN ASPART [Concomitant]
     Active Substance: INSULIN ASPART
     Indication: Type 2 diabetes mellitus
     Dosage: 10 U IN MORNING AND 10 U IN EVNG
     Route: 065
  4. VINDESINE [Concomitant]
     Active Substance: VINDESINE
     Dosage: ON DAY 1; 6 CYCLES
     Route: 065
  5. CYCLOPHOSPHAMIDE [Concomitant]
     Active Substance: CYCLOPHOSPHAMIDE
     Indication: Langerhans^ cell histiocytosis
     Dosage: ON DAY 1, 6 CYCLES
     Route: 065
  6. DEXAMETHASONE [Concomitant]
     Active Substance: DEXAMETHASONE
     Indication: Langerhans^ cell histiocytosis
     Dosage: ON DAYS 1-5, 6 CYCLES
     Route: 065
  7. ETOPOSIDE [Concomitant]
     Active Substance: ETOPOSIDE
     Indication: Langerhans^ cell histiocytosis
     Dosage: ON DAYS 1-4, 6 CYCLES
     Route: 065
  8. DESMOPRESSIN ACETATE [Concomitant]
     Active Substance: DESMOPRESSIN ACETATE
     Indication: Diabetes insipidus
     Route: 048
  9. LEVOTHYROXINE SODIUM [Concomitant]
     Active Substance: LEVOTHYROXINE SODIUM
     Indication: Hypothyroidism
     Route: 048

REACTIONS (1)
  - Myelosuppression [Recovered/Resolved]
